FAERS Safety Report 13108881 (Version 2)
Quarter: 2017Q1

REPORT INFORMATION
  Report Type: Spontaneous
  Country: US (occurrence: US)
  Receive Date: 20170112
  Receipt Date: 20170316
  Transmission Date: 20170428
  Serious: Yes (Life-Threatening, Hospitalization, Other)
  Sender: FDA-Public Use
  Company Number: US-GLAXOSMITHKLINE-US2017GSK001477

PATIENT
  Age: 84 Year
  Sex: Female
  Weight: 74 kg

DRUGS (6)
  1. COREG CR [Suspect]
     Active Substance: CARVEDILOL PHOSPHATE
     Indication: PRODUCT USED FOR UNKNOWN INDICATION
     Dosage: 40 MG, U
     Dates: start: 201603
  2. COREG CR [Interacting]
     Active Substance: CARVEDILOL PHOSPHATE
     Dosage: 60 MG, QD
     Dates: start: 201608
  3. COREG [Interacting]
     Active Substance: CARVEDILOL
     Indication: PRODUCT USED FOR UNKNOWN INDICATION
     Dosage: 60 MG, UNK
  4. ELIQUIS [Suspect]
     Active Substance: APIXABAN
     Indication: PRODUCT USED FOR UNKNOWN INDICATION
     Dosage: 5 MG, BID
     Dates: start: 20160216
  5. CALAN SR [Interacting]
     Active Substance: VERAPAMIL HYDROCHLORIDE
     Indication: PRODUCT USED FOR UNKNOWN INDICATION
     Dosage: 240 MG, UNK
     Dates: start: 201510
  6. HYZAAR [Suspect]
     Active Substance: HYDROCHLOROTHIAZIDE\LOSARTAN POTASSIUM
     Indication: PRODUCT USED FOR UNKNOWN INDICATION
     Dosage: 100 MG, QD

REACTIONS (21)
  - Hospitalisation [Unknown]
  - Slow speech [Unknown]
  - Fatigue [Unknown]
  - Drug interaction [Unknown]
  - Erythema [Recovered/Resolved]
  - Left atrial enlargement [Unknown]
  - Ocular hyperaemia [Unknown]
  - Cerebral haemorrhage [Unknown]
  - Toxicity to various agents [Unknown]
  - Drug level increased [Unknown]
  - Hypotension [Unknown]
  - Incorrect dose administered [Unknown]
  - Overdose [Unknown]
  - Pallor [Unknown]
  - Apparent death [Unknown]
  - Catheterisation cardiac [Unknown]
  - Internal haemorrhage [Unknown]
  - Loss of consciousness [Unknown]
  - Eye disorder [Unknown]
  - Heart rate decreased [Unknown]
  - Petechiae [Unknown]

NARRATIVE: CASE EVENT DATE: 201602
